FAERS Safety Report 8979950 (Version 1)
Quarter: 2012Q4

REPORT INFORMATION
  Report Type: 
  Country: BJ (occurrence: BJ)
  Receive Date: 20121221
  Receipt Date: 20121221
  Transmission Date: 20130627
  Serious: Yes (Death)
  Sender: FDA-Public Use
  Company Number: PHHY2012BJ117895

PATIENT
  Age: 53 Year
  Sex: Male

DRUGS (1)
  1. GLIVEC [Suspect]
     Indication: CHRONIC MYELOID LEUKAEMIA
     Dosage: 400 mg, daily
     Route: 048

REACTIONS (1)
  - Death [Fatal]
